FAERS Safety Report 4535119-8 (Version None)
Quarter: 2004Q4

REPORT INFORMATION
  Report Type: 
  Country: None (occurrence: None)
  Receive Date: 20041222
  Receipt Date: 20041006
  Transmission Date: 20050328
  Serious: Yes (Other)
  Sender: FDA-Public Use
  Company Number: US-MERCK-0410USA01005

PATIENT
  Age: 57 Year
  Sex: Male
  Weight: 81 kg

DRUGS (9)
  1. ZOCOR [Suspect]
     Indication: BLOOD CHOLESTEROL INCREASED
     Route: 048
     Dates: start: 20001001, end: 20040801
  2. ZOCOR [Suspect]
     Indication: HYPERLIPIDAEMIA
     Route: 048
     Dates: start: 20001001, end: 20040801
  3. [THERAPY UNSPECIFIED] [Concomitant]
     Route: 065
  4. ASPIRIN [Concomitant]
     Route: 065
  5. DIGOXIN [Concomitant]
     Route: 048
  6. RANITIDINE [Concomitant]
     Route: 048
  7. METOPROLOL [Concomitant]
     Route: 048
  8. CLOPIDOGREL BISULFATE [Concomitant]
     Route: 048
  9. PRINIVIL [Concomitant]
     Route: 048

REACTIONS (6)
  - AGEUSIA [None]
  - CEREBROVASCULAR ACCIDENT [None]
  - DISTURBANCE IN ATTENTION [None]
  - DYSARTHRIA [None]
  - HYPOACUSIS [None]
  - SPEECH DISORDER [None]
